FAERS Safety Report 16931466 (Version 1)
Quarter: 2019Q4

REPORT INFORMATION
  Report Type: Report from Study
  Country: AT (occurrence: AT)
  Receive Date: 20191017
  Receipt Date: 20191017
  Transmission Date: 20200122
  Serious: Yes (Hospitalization)
  Sender: FDA-Public Use
  Company Number: PHHO2019AT007069

PATIENT
  Age: 76 Year
  Sex: Female
  Weight: 42 kg

DRUGS (10)
  1. HIDROXICLOROQUINA [Concomitant]
     Active Substance: HYDROXYCHLOROQUINE
     Indication: PRODUCT USED FOR UNKNOWN INDICATION
     Dosage: UNK
     Route: 065
     Dates: start: 20141115, end: 20190626
  2. VAY-736. [Suspect]
     Active Substance: VAY-736
     Indication: SJOGREN^S SYNDROME
     Dosage: CODE NOT BROKEN
     Route: 058
     Dates: start: 20180109, end: 20181212
  3. EUTHYROX [Concomitant]
     Active Substance: LEVOTHYROXINE SODIUM
     Indication: AUTOIMMUNE THYROID DISORDER
     Dosage: 100 MG, UNK
     Route: 048
     Dates: start: 19970628
  4. RESOCHIN [Concomitant]
     Active Substance: NIFEDIPINE
     Indication: PRODUCT USED FOR UNKNOWN INDICATION
     Dosage: UNK
     Route: 065
     Dates: end: 20190627
  5. MYCOPHENOLATE MOFETIL. [Suspect]
     Active Substance: MYCOPHENOLATE MOFETIL
     Indication: SJOGREN^S SYNDROME
     Dosage: 500 MG, BID
     Route: 048
     Dates: start: 20190502, end: 20190626
  6. JORIX [Concomitant]
     Indication: MEDICAL DIET
     Dosage: UNK
     Route: 048
     Dates: start: 20100628
  7. BLINDED PLACEBO [Suspect]
     Active Substance: INVESTIGATIONAL PRODUCT
     Indication: SJOGREN^S SYNDROME
     Dosage: CODE NOT BROKEN
     Route: 058
     Dates: start: 20180109, end: 20181212
  8. THROMBO ASS [Concomitant]
     Active Substance: ASPIRIN
     Indication: PROPHYLAXIS
     Dosage: 100 MG, UNK
     Route: 048
     Dates: start: 20080628
  9. VAY-736. [Suspect]
     Active Substance: VAY-736
     Indication: SJOGREN^S SYNDROME
     Dosage: CODE NOT BROKEN
     Route: 058
     Dates: start: 20180109, end: 20181212
  10. BLINDED NO TREATMENT RECEIVED [Suspect]
     Active Substance: INVESTIGATIONAL PRODUCT
     Indication: SJOGREN^S SYNDROME
     Dosage: CODE NOT BROKEN
     Route: 058
     Dates: start: 20180109, end: 20181212

REACTIONS (2)
  - Anaemia [Recovering/Resolving]
  - Weight decreased [Recovering/Resolving]

NARRATIVE: CASE EVENT DATE: 20190626
